FAERS Safety Report 9415626 (Version 2)
Quarter: 2013Q3

REPORT INFORMATION
  Report Type: Spontaneous
  Country: ES (occurrence: ES)
  Receive Date: 20130723
  Receipt Date: 20130724
  Transmission Date: 20140515
  Serious: Yes (Other)
  Sender: FDA-Public Use
  Company Number: ES-PFIZER INC-2013212713

PATIENT
  Age: 66 Year
  Sex: Female

DRUGS (1)
  1. LYRICA [Suspect]
     Indication: NECK PAIN
     Dosage: 75 MG, 1X/DAY
     Route: 048
     Dates: start: 20130531, end: 20130621

REACTIONS (3)
  - Off label use [Unknown]
  - Hallucination, visual [Recovered/Resolved]
  - Diplopia [Recovered/Resolved]
